FAERS Safety Report 5455618-4 (Version None)
Quarter: 2007Q3

REPORT INFORMATION
  Report Type: 
  Country: None (occurrence: None)
  Receive Date: 20070918
  Receipt Date: 20070907
  Transmission Date: 20080115
  Serious: Yes (Death, Hospitalization)
  Sender: FDA-Public Use
  Company Number: US-GENENTECH-247316

PATIENT
  Age: 67 Year
  Sex: Male
  Weight: 100 kg

DRUGS (1)
  1. BEVACIZUMAB [Suspect]
     Indication: RENAL CELL CARCINOMA STAGE UNSPECIFIED
     Dosage: 1000 MG, UNK
     Dates: start: 20070712

REACTIONS (1)
  - INTESTINAL OBSTRUCTION [None]
